FAERS Safety Report 10171989 (Version 1)
Quarter: 2014Q2

REPORT INFORMATION
  Report Type: Spontaneous
  Country: US (occurrence: US)
  Receive Date: 20140515
  Receipt Date: 20140515
  Transmission Date: 20141212
  Serious: Yes (Other)
  Sender: FDA-Public Use
  Company Number: US-PFIZER INC-2014129548

PATIENT
  Age: 58 Year
  Sex: Female
  Weight: 108 kg

DRUGS (2)
  1. LYRICA [Suspect]
     Indication: FIBROMYALGIA
     Dosage: UNK
     Route: 048
  2. LYRICA [Suspect]
     Indication: BACK PAIN
     Dosage: 100MG IN THE MORNING, 100MG AT LUNCH AND TWO 100MG AT BEDTIME
     Route: 048

REACTIONS (1)
  - Arthropathy [Unknown]
